FAERS Safety Report 4590644-9 (Version None)
Quarter: 2005Q1

REPORT INFORMATION
  Report Type: 
  Country: None (occurrence: None)
  Receive Date: 20050224
  Receipt Date: 20050215
  Transmission Date: 20050727
  Serious: Yes (Other)
  Sender: FDA-Public Use
  Company Number: US-JNJFOC-20041003333

PATIENT
  Sex: Female
  Weight: 61.69 kg

DRUGS (5)
  1. REMICADE [Suspect]
     Route: 042
  2. REMICADE [Suspect]
     Indication: RHEUMATOID ARTHRITIS
     Route: 042
  3. METHOTREXATE [Concomitant]
     Indication: RHEUMATOID ARTHRITIS
     Dates: start: 20000101
  4. PREDNISONE [Concomitant]
     Indication: RHEUMATOID ARTHRITIS
     Dates: start: 20011217
  5. VIOXX [Concomitant]
     Indication: RHEUMATOID ARTHRITIS
     Dates: start: 20000101

REACTIONS (6)
  - ATHEROSCLEROSIS [None]
  - BLINDNESS [None]
  - CEREBRAL ARTERY STENOSIS [None]
  - PROTEIN C INCREASED [None]
  - PROTEIN S INCREASED [None]
  - RETINAL ARTERY OCCLUSION [None]
